FAERS Safety Report 4738601-3 (Version None)
Quarter: 2005Q3

REPORT INFORMATION
  Report Type: 
  Country: None (occurrence: None)
  Receive Date: 20050803
  Receipt Date: 20050712
  Transmission Date: 20060218
  Serious: Yes (Hospitalization)
  Sender: FDA-Public Use
  Company Number: USA050496665

PATIENT
  Sex: Male

DRUGS (1)
  1. GEMZAR [Suspect]
     Indication: PANCREATIC CARCINOMA
     Dosage: 1000 MG/M2/ 1 OTHER
     Route: 050

REACTIONS (4)
  - INFECTION [None]
  - OEDEMA PERIPHERAL [None]
  - SKIN EXFOLIATION [None]
  - WOUND SECRETION [None]
